FAERS Safety Report 18741471 (Version 1)
Quarter: 2021Q1

REPORT INFORMATION
  Report Type: Spontaneous
  Country: US (occurrence: US)
  Receive Date: 20210114
  Receipt Date: 20210114
  Transmission Date: 20210419
  Serious: No
  Sender: FDA-Public Use
  Company Number: US-ABBVIE-20K-163-3576852-00

PATIENT
  Sex: Male
  Weight: 76.27 kg

DRUGS (7)
  1. NOURIANZ [Concomitant]
     Active Substance: ISTRADEFYLLINE
     Indication: PRODUCT USED FOR UNKNOWN INDICATION
  2. DUOPA [Suspect]
     Active Substance: CARBIDOPA\LEVODOPA
  3. DUOPA [Suspect]
     Active Substance: CARBIDOPA\LEVODOPA
     Indication: PRODUCT USED FOR UNKNOWN INDICATION
     Route: 050
  4. VITAMIN D [Concomitant]
     Active Substance: VITAMIN D NOS
     Indication: PRODUCT USED FOR UNKNOWN INDICATION
  5. ENTACAPONE. [Concomitant]
     Active Substance: ENTACAPONE
     Indication: PRODUCT USED FOR UNKNOWN INDICATION
  6. AMLODIPINE [Concomitant]
     Active Substance: AMLODIPINE BESYLATE
     Indication: PRODUCT USED FOR UNKNOWN INDICATION
  7. FLUORIDE [Concomitant]
     Active Substance: SODIUM FLUORIDE\STANNOUS FLUORIDE
     Indication: PRODUCT USED FOR UNKNOWN INDICATION

REACTIONS (10)
  - Hypertension [Not Recovered/Not Resolved]
  - Freezing phenomenon [Not Recovered/Not Resolved]
  - Therapeutic response shortened [Not Recovered/Not Resolved]
  - Compulsive sexual behaviour [Not Recovered/Not Resolved]
  - Discharge [Not Recovered/Not Resolved]
  - Fall [Recovered/Resolved]
  - Weight decreased [Unknown]
  - Device dislocation [Recovered/Resolved]
  - Disorientation [Not Recovered/Not Resolved]
  - On and off phenomenon [Not Recovered/Not Resolved]
